FAERS Safety Report 5978284-8 (Version None)
Quarter: 2008Q4

REPORT INFORMATION
  Report Type: 
  Country: None (occurrence: None)
  Receive Date: 20081204
  Receipt Date: 20081125
  Transmission Date: 20090506
  Serious: Yes (Hospitalization, Other)
  Sender: FDA-Public Use
  Company Number: GB-CELGENEUS-167-20484-08101886

PATIENT
  Sex: Male

DRUGS (2)
  1. INNOHEP [Suspect]
     Route: 058
  2. HEPARIN [Concomitant]
     Indication: DRUG USE FOR UNKNOWN INDICATION
     Route: 065

REACTIONS (5)
  - BLINDNESS CORTICAL [None]
  - CEREBRAL INFARCTION [None]
  - HEPARIN-INDUCED THROMBOCYTOPENIA [None]
  - MESENTERIC ARTERY THROMBOSIS [None]
  - PERIPHERAL ISCHAEMIA [None]
